FAERS Safety Report 5673845-8 (Version None)
Quarter: 2008Q2

REPORT INFORMATION
  Report Type: 
  Country: None (occurrence: None)
  Receive Date: 20080226
  Receipt Date: 20070531
  Transmission Date: 20081010
  Serious: Yes (Disabling)
  Sender: FDA-Public Use
  Company Number: 500219

PATIENT
  Age: 25 Year
  Sex: Male

DRUGS (1)
  1. ACCUTANE [Suspect]
     Indication: DRUG USE FOR UNKNOWN INDICATION
     Dosage: 40 MG 1 PER 2 DAY ORAL
     Route: 048
     Dates: start: 20070519, end: 20071029

REACTIONS (2)
  - ARTHRALGIA [None]
  - TINNITUS [None]
